FAERS Safety Report 18232298 (Version 1)
Quarter: 2020Q3

REPORT INFORMATION
  Report Type: Spontaneous
  Country: US (occurrence: US)
  Receive Date: 20200904
  Receipt Date: 20200904
  Transmission Date: 20201103
  Serious: Yes (Other)
  Sender: FDA-Public Use
  Company Number: None

PATIENT
  Age: 55 Year
  Sex: Male
  Weight: 95.2 kg

DRUGS (18)
  1. REMDESIVIR. [Suspect]
     Active Substance: REMDESIVIR
     Indication: COVID-19
     Dates: start: 20200902, end: 20200903
  2. CEFTRIAXONE 1 G IV DAILY [Concomitant]
     Dates: start: 20200903
  3. FUROSEMIDE 100 MG IV X1 [Concomitant]
     Dates: start: 20200903
  4. FUROSEMIDE 60 MG IV X1 [Concomitant]
     Dates: start: 20200903
  5. MAGNESIUM 2G IV X1 [Concomitant]
     Dates: start: 20200903
  6. FENTANYL CONTINUOUS INFUSION [Concomitant]
     Active Substance: FENTANYL
     Dates: start: 20200902
  7. CHLORHEXIDINE 0.12% MOUTHWASH 15 ML BID [Concomitant]
     Dates: start: 20200902
  8. SODIUM BICARB 50 MEQ IV X1 [Concomitant]
     Dates: start: 20200903
  9. MIDAZOLAM CONTINUOUS INFUSION ? TITRATED [Concomitant]
     Dates: start: 20200902
  10. CALCIUM GLUCONATE 1G IV X1 [Concomitant]
     Dates: start: 20200903, end: 20200903
  11. HEPARIN 7500 UNITS SUBQ Q8H [Concomitant]
     Dates: start: 20200902, end: 20200903
  12. DEXTROSE 25 G IV X1 [Concomitant]
     Dates: start: 20200903
  13. FAMOTIDINE 20 MG IV NIGHTLY [Concomitant]
     Dates: start: 20200902
  14. DIALYSATE SOLUTION [Concomitant]
     Dates: start: 20200903
  15. VASOPRESSIN CONTINUOUS INFUSION TITRATED [Concomitant]
     Dates: start: 20200903
  16. DEXAMETHASONE 20 MG IV DAILY [Concomitant]
     Dates: start: 20200903
  17. HEPARIN CONTINOUS INFUSION FOR CRRT [Concomitant]
     Dates: start: 20200903
  18. NOREPINEPHRINE CONTINUOUS INFUSION TITRATED [Concomitant]
     Dates: start: 20200902

REACTIONS (5)
  - Shock [None]
  - Cardiomyopathy [None]
  - Hypotension [None]
  - Fluid overload [None]
  - Acute kidney injury [None]

NARRATIVE: CASE EVENT DATE: 20200903
